FAERS Safety Report 9246738 (Version 3)
Quarter: 2013Q2

REPORT INFORMATION
  Report Type: Spontaneous
  Country: GB (occurrence: GB)
  Receive Date: 20130422
  Receipt Date: 20130508
  Transmission Date: 20140414
  Serious: Yes (Hospitalization)
  Sender: FDA-Public Use
  Company Number: GB-VERTEX PHARMACEUTICALS INC.-2013-005234

PATIENT
  Age: 34 Year
  Sex: Female
  Weight: 57.7 kg

DRUGS (3)
  1. INCIVO [Suspect]
     Indication: HEPATITIS C
     Dosage: 750 MG, QD
     Route: 048
     Dates: start: 20130129, end: 20130328
  2. RIBAVIRIN [Suspect]
     Indication: HEPATITIS C
     Dosage: DOSAGE FORM: UNKNOWN
     Route: 065
     Dates: start: 20130129, end: 20130328
  3. PEGINTERFERON ALFA-2A [Concomitant]
     Dosage: DOSAGE FORM: UNKNOWN
     Dates: start: 20130129

REACTIONS (1)
  - Drug reaction with eosinophilia and systemic symptoms [Recovered/Resolved]
